FAERS Safety Report 24308850 (Version 1)
Quarter: 2024Q3

REPORT INFORMATION
  Report Type: Spontaneous
  Country: US (occurrence: US)
  Receive Date: 20240911
  Receipt Date: 20240911
  Transmission Date: 20241017
  Serious: No
  Sender: PFIZER
  Company Number: US-PFIZER INC-202400254213

PATIENT
  Sex: Male

DRUGS (2)
  1. RITLECITINIB [Suspect]
     Active Substance: RITLECITINIB
     Indication: Alopecia areata
     Dosage: 50 MG, DAILY
  2. RITLECITINIB [Suspect]
     Active Substance: RITLECITINIB
     Indication: Alopecia universalis

REACTIONS (1)
  - Therapeutic product effect incomplete [Unknown]
